FAERS Safety Report 18351849 (Version 2)
Quarter: 2021Q2

REPORT INFORMATION
  Report Type: Spontaneous
  Country: US (occurrence: US)
  Receive Date: 20201006
  Receipt Date: 20210424
  Transmission Date: 20210717
  Serious: Yes (Death, Other)
  Sender: FDA-Public Use
  Company Number: US-TEVA-2020-US-1834247

PATIENT
  Age: 62 Year
  Sex: Male

DRUGS (19)
  1. TRAMADOL. [Suspect]
     Active Substance: TRAMADOL
     Dosage: FORM OF ADMIN: EXTENDED RELEASE TABLET
     Route: 065
  2. HYSINGLA ER [Suspect]
     Active Substance: HYDROCODONE BITARTRATE
     Route: 065
  3. TEVA CLONAZEPAM [Suspect]
     Active Substance: CLONAZEPAM
     Indication: MYALGIA
  4. OXYCODONE [Suspect]
     Active Substance: OXYCODONE
     Route: 065
  5. HYDROCODONE AND ACETAMINOPHEN TABLETS [Suspect]
     Active Substance: ACETAMINOPHEN\HYDROCODONE
     Route: 065
  6. OXYFAST [Suspect]
     Active Substance: OXYCODONE
     Route: 065
  7. PALLADONE [Suspect]
     Active Substance: HYDROMORPHONE HYDROCHLORIDE
     Route: 065
  8. ACETAMINOPHEN. [Suspect]
     Active Substance: ACETAMINOPHEN
     Route: 065
  9. OXYMORPHONE [Suspect]
     Active Substance: OXYMORPHONE
     Route: 065
  10. CARISOPRODOL. [Suspect]
     Active Substance: CARISOPRODOL
     Route: 065
  11. OXYCODONE [Suspect]
     Active Substance: OXYCODONE
     Dosage: FORM OF ADMIN:  IMMEDIATE?RELEASE TABLETS
     Route: 065
  12. HYDROMORPHONE [Suspect]
     Active Substance: HYDROMORPHONE
     Route: 065
  13. MEPROBAMATE. [Suspect]
     Active Substance: MEPROBAMATE
     Route: 065
  14. DHC PLUS [Suspect]
     Active Substance: ACETAMINOPHEN\CAFFEINE\DIHYDROCODEINE BITARTRATE
     Route: 065
  15. HYDROMORPHONE [Suspect]
     Active Substance: HYDROMORPHONE
     Route: 048
  16. TEVA CLONAZEPAM [Suspect]
     Active Substance: CLONAZEPAM
     Indication: ANXIETY
     Route: 065
  17. TEVA CLONAZEPAM [Suspect]
     Active Substance: CLONAZEPAM
     Indication: BACK PAIN
  18. MSIR [Suspect]
     Active Substance: MORPHINE SULFATE
     Route: 065
  19. CAFFEINE. [Suspect]
     Active Substance: CAFFEINE
     Route: 065

REACTIONS (4)
  - Drug dependence [Fatal]
  - Overdose [Unknown]
  - Economic problem [Unknown]
  - Substance use disorder [Unknown]
